FAERS Safety Report 5607342-2 (Version None)
Quarter: 2008Q1

REPORT INFORMATION
  Report Type: 
  Country: None (occurrence: None)
  Receive Date: 20080130
  Receipt Date: 20080128
  Transmission Date: 20080703
  Serious: Yes (Other)
  Sender: FDA-Public Use
  Company Number: PT-JNJFOC-20080106020

PATIENT
  Sex: Male
  Weight: 90 kg

DRUGS (5)
  1. RISPERDAL [Suspect]
     Indication: AUTISM
     Route: 048
     Dates: end: 20080122
  2. RISPERDAL [Suspect]
     Route: 048
     Dates: end: 20080122
  3. TOPAMAX [Concomitant]
     Indication: DRUG USE FOR UNKNOWN INDICATION
     Dates: start: 20000101
  4. TEGRETOL [Concomitant]
     Indication: DRUG USE FOR UNKNOWN INDICATION
     Dates: start: 20000101
  5. NALTREXONE HYDROCHLORIDE [Concomitant]
     Indication: DRUG USE FOR UNKNOWN INDICATION
     Dates: start: 20030101

REACTIONS (5)
  - ANXIETY [None]
  - GENERALISED OEDEMA [None]
  - NAUSEA [None]
  - POLYDIPSIA [None]
  - VOMITING [None]
